FAERS Safety Report 19686881 (Version 1)
Quarter: 2021Q3

REPORT INFORMATION
  Report Type: Spontaneous
  Country: ES (occurrence: ES)
  Receive Date: 20210811
  Receipt Date: 20210811
  Transmission Date: 20211014
  Serious: Yes (Other)
  Sender: FDA-Public Use
  Company Number: ES-MYLANLABS-2021M1049107

PATIENT
  Age: 83 Year
  Sex: Female

DRUGS (3)
  1. DEMILOS [Interacting]
     Active Substance: CALCIUM CARBONATE\CHOLECALCIFEROL
     Indication: OSTEOPOROSIS
     Dosage: 600 MILLIGRAM
     Route: 048
     Dates: start: 20170501
  2. FENTANYL TRANSDERMAL SYSTEM [Suspect]
     Active Substance: FENTANYL
     Indication: PRODUCT USED FOR UNKNOWN INDICATION
     Dosage: 25 MICROGRAM
     Dates: start: 20170501
  3. DULOTEX [Interacting]
     Active Substance: DULOXETINE
     Indication: ANALGESIC THERAPY
     Dosage: 30 MILLIGRAM
     Route: 048
     Dates: start: 20210119, end: 20210131

REACTIONS (4)
  - Anxiety [Recovering/Resolving]
  - Agitation [Recovering/Resolving]
  - Disorientation [Recovering/Resolving]
  - Drug interaction [Unknown]

NARRATIVE: CASE EVENT DATE: 20210127
